FAERS Safety Report 6062160-9 (Version None)
Quarter: 2009Q1

REPORT INFORMATION
  Report Type: 
  Country: None (occurrence: None)
  Receive Date: 20090202
  Receipt Date: 20090202
  Transmission Date: 20090719
  Serious: Yes (Other)
  Sender: FDA-Public Use
  Company Number: None

PATIENT
  Age: 50 Year
  Sex: Female

DRUGS (1)
  1. ROPINIROLE [Suspect]
     Dosage: 0.5 MG PO TWICE AM TWICE PM PER PT GENERIC PAST MONTH
     Route: 048

REACTIONS (5)
  - ASTHENIA [None]
  - DRUG INEFFECTIVE [None]
  - DYSKINESIA [None]
  - FEAR [None]
  - PRODUCT QUALITY ISSUE [None]
